FAERS Safety Report 24158958 (Version 3)
Quarter: 2024Q4

REPORT INFORMATION
  Report Type: Spontaneous
  Country: US (occurrence: US)
  Receive Date: 20240731
  Receipt Date: 20241018
  Transmission Date: 20250115
  Serious: No
  Sender: PURDUE
  Company Number: US-PURDUE PHARMA-USA-2024-0311044

PATIENT
  Age: 56 Year
  Sex: Female
  Weight: 63.5 kg

DRUGS (4)
  1. BUTRANS [Suspect]
     Active Substance: BUPRENORPHINE
     Indication: Procedural pain
     Dosage: 5 MCG/HR (EVERY 7 DAYS)
     Route: 062
  2. BUTRANS [Suspect]
     Active Substance: BUPRENORPHINE
     Dosage: 7.5MCG/HR
     Route: 062
  3. BUTRANS [Suspect]
     Active Substance: BUPRENORPHINE
     Dosage: 5 MCG/HR
     Route: 062
  4. BUTRANS [Suspect]
     Active Substance: BUPRENORPHINE
     Dosage: 5MCG/ WEEKLY
     Route: 062

REACTIONS (2)
  - Drug screen negative [Not Recovered/Not Resolved]
  - Feeling abnormal [Not Recovered/Not Resolved]

NARRATIVE: CASE EVENT DATE: 20240111
